FAERS Safety Report 7007322-9 (Version None)
Quarter: 2010Q3

REPORT INFORMATION
  Report Type: 
  Country: None (occurrence: None)
  Receive Date: 20100922
  Receipt Date: 20100917
  Transmission Date: 20110219
  Serious: Yes (Hospitalization)
  Sender: FDA-Public Use
  Company Number: JP-BAYER-200914039BYL

PATIENT
  Age: 54 Year
  Sex: Male
  Weight: 80 kg

DRUGS (12)
  1. NEXAVAR [Suspect]
     Indication: HEPATIC NEOPLASM MALIGNANT
     Dosage: UNIT DOSE: 200 MG
     Route: 048
     Dates: start: 20091009, end: 20091020
  2. NOVAMIN [Suspect]
     Indication: PROPHYLAXIS OF NAUSEA AND VOMITING
     Dosage: TOTAL DAILY DOSE: 15 MG  UNIT DOSE: 5 MG
     Route: 048
     Dates: end: 20100108
  3. OMEPRAL [Concomitant]
     Dosage: TOTAL DAILY DOSE: 20 MG  UNIT DOSE: 20 MG
     Route: 048
  4. LENDORMIN D [Concomitant]
     Dosage: TOTAL DAILY DOSE: 0.25 MG  UNIT DOSE: 0.25 MG
     Route: 048
  5. BIOFERMIN [Concomitant]
     Indication: DISBACTERIOSIS
     Dosage: TOTAL DAILY DOSE: 3 DF
     Route: 048
  6. URSO 250 [Concomitant]
     Dosage: TOTAL DAILY DOSE: 300 MG
     Route: 048
  7. STROCAIN [Concomitant]
     Dosage: TOTAL DAILY DOSE: 15 MG  UNIT DOSE: 5 MG
     Route: 048
  8. MAALOX [Concomitant]
     Dosage: TOTAL DAILY DOSE: 3.6 G  UNIT DOSE: 1.2 G
     Route: 048
  9. UREPEARL [Concomitant]
     Indication: PROPHYLAXIS
     Dosage: SINCE BEFORE ADMINISTRATION
     Route: 061
     Dates: end: 20091111
  10. HIRUDOID [Concomitant]
     Indication: PROPHYLAXIS
     Route: 061
     Dates: end: 20091111
  11. NEOPHAGEN C [Concomitant]
     Route: 042
     Dates: start: 20091009, end: 20091019
  12. CALONAL [Concomitant]
     Route: 048
     Dates: start: 20091022

REACTIONS (9)
  - ASTHENIA [None]
  - BLOOD CREATINE PHOSPHOKINASE INCREASED [None]
  - DECREASED APPETITE [None]
  - FATIGUE [None]
  - HEPATIC ENCEPHALOPATHY [None]
  - HEPATIC FUNCTION ABNORMAL [None]
  - NAUSEA [None]
  - PALMAR-PLANTAR ERYTHRODYSAESTHESIA SYNDROME [None]
  - PARKINSONISM [None]
